FAERS Safety Report 6074716-8 (Version None)
Quarter: 2009Q1

REPORT INFORMATION
  Report Type: 
  Country: None (occurrence: None)
  Receive Date: 20090212
  Receipt Date: 20090129
  Transmission Date: 20090719
  Serious: Yes (Other)
  Sender: FDA-Public Use
  Company Number: US-SANOFI-SYNTHELABO-F03200900004

PATIENT
  Sex: Male
  Weight: 36.4 kg

DRUGS (11)
  1. ACTIGALL [Concomitant]
     Indication: DRUG USE FOR UNKNOWN INDICATION
     Route: 048
  2. BACTRIM DS [Concomitant]
     Indication: DRUG USE FOR UNKNOWN INDICATION
     Route: 048
  3. PEGFILGRASTIM [Suspect]
     Indication: CHRONIC LYMPHOCYTIC LEUKAEMIA
     Dosage: 6 MG SC APPROX 24 HOURS AFTER CHEMO
     Route: 065
  4. HEPARIN LOCK-FLUSH [Concomitant]
     Indication: CENTRAL VENOUS CATHETERISATION
     Dosage: UNK
     Route: 065
  5. FLUDARABINE PHOSPHATE [Suspect]
     Indication: CHRONIC LYMPHOCYTIC LEUKAEMIA
     Dosage: 30 MG IV ON DAYS 2 - 4
     Route: 042
  6. PERIACTIN [Concomitant]
     Indication: DRUG USE FOR UNKNOWN INDICATION
     Route: 048
  7. RITUXAN [Suspect]
     Indication: CHRONIC LYMPHOCYTIC LEUKAEMIA
     Dosage: 375 MG/M2 (DAY 1)
     Route: 042
  8. VALTREX [Concomitant]
     Indication: DRUG USE FOR UNKNOWN INDICATION
     Route: 048
  9. OXALIPLATIN [Suspect]
     Indication: CHRONIC LYMPHOCYTIC LEUKAEMIA
     Dosage: 30 MG IV DAYS 1-4
     Route: 042
  10. VORICONAZOLE [Concomitant]
     Indication: DRUG USE FOR UNKNOWN INDICATION
     Route: 048
  11. CYTARABINE [Suspect]
     Dosage: 500 MG IV ON DAYS 2 - 4
     Route: 042

REACTIONS (2)
  - DIFFUSE LARGE B-CELL LYMPHOMA [None]
  - PERONEAL NERVE PALSY [None]
